FAERS Safety Report 7665363-2 (Version None)
Quarter: 2011Q3

REPORT INFORMATION
  Report Type: 
  Country: None (occurrence: None)
  Receive Date: 20110806
  Receipt Date: 20110307
  Transmission Date: 20111222
  Serious: No
  Sender: FDA-Public Use
  Company Number: US-ABBOTT-11P-163-0709650-00

PATIENT
  Sex: Male
  Weight: 135.29 kg

DRUGS (4)
  1. ASPIRIN [Concomitant]
     Indication: PRODUCT USED FOR UNKNOWN INDICATION
     Dates: start: 20110304
  2. LIPITOR [Concomitant]
     Indication: PRODUCT USED FOR UNKNOWN INDICATION
     Dates: start: 20110304
  3. NIASPAN [Suspect]
     Indication: CORONARY ARTERIAL STENT INSERTION
     Dosage: AT BEDTIME
     Dates: start: 20110304
  4. EFFIENT [Concomitant]
     Indication: PRODUCT USED FOR UNKNOWN INDICATION
     Dates: start: 20110304

REACTIONS (9)
  - NERVOUSNESS [None]
  - HYPERHIDROSIS [None]
  - HYPOAESTHESIA [None]
  - MIDDLE INSOMNIA [None]
  - ANXIETY [None]
  - DIZZINESS [None]
  - FEELING HOT [None]
  - TENSION [None]
  - PARAESTHESIA [None]
